FAERS Safety Report 7367193-8 (Version None)
Quarter: 2011Q1

REPORT INFORMATION
  Report Type: 
  Country: None (occurrence: None)
  Receive Date: 20110311
  Receipt Date: 20110302
  Transmission Date: 20110831
  Serious: Yes (Other)
  Sender: FDA-Public Use
  Company Number: DKLU1067627

PATIENT
  Age: 2 Year
  Sex: Male

DRUGS (2)
  1. TOPAMAX [Concomitant]
  2. SABRIL [Suspect]
     Indication: INFANTILE SPASMS
     Dosage: 500 MG MILLIGRAM(S), 2 IN 1 D, ORAL
     Route: 048
     Dates: start: 20101118, end: 20110201

REACTIONS (4)
  - RETINOGRAM ABNORMAL [None]
  - CLUMSINESS [None]
  - CONVULSION [None]
  - DRUG INEFFECTIVE [None]
